FAERS Safety Report 6606685-3 (Version None)
Quarter: 2010Q1

REPORT INFORMATION
  Report Type: 
  Country: None (occurrence: None)
  Receive Date: 20100226
  Receipt Date: 20100218
  Transmission Date: 20100710
  Serious: Yes (Death)
  Sender: FDA-Public Use
  Company Number: SK-GENENTECH-298485

PATIENT
  Sex: Male

DRUGS (5)
  1. MABTHERA [Suspect]
     Indication: HAIRY CELL LEUKAEMIA
     Dosage: UNK
     Route: 065
     Dates: start: 20050301, end: 20050301
  2. CLADRIBINE [Concomitant]
     Indication: DRUG USE FOR UNKNOWN INDICATION
     Dosage: UNK
     Dates: start: 19980301
  3. CLADRIBINE [Concomitant]
     Dosage: UNK
     Dates: start: 20010101
  4. CLADRIBINE [Concomitant]
     Dosage: UNK
     Route: 058
     Dates: start: 20030401
  5. CLADRIBINE [Concomitant]
     Dosage: UNK
     Dates: start: 20050301

REACTIONS (1)
  - FUNGAL SEPSIS [None]
